FAERS Safety Report 6427082-X (Version None)
Quarter: 2009Q4

REPORT INFORMATION
  Report Type: 
  Country: None (occurrence: None)
  Receive Date: 20091026
  Receipt Date: 20090727
  Transmission Date: 20100525
  Serious: No
  Sender: FDA-Public Use
  Company Number: FPI-09-FIR-0177

PATIENT
  Age: 74 Year
  Sex: Male

DRUGS (1)
  1. FIRMAGON [Suspect]
     Indication: PROSTATE CANCER
     Dosage: 120MG
     Dates: start: 20090515, end: 20090529

REACTIONS (3)
  - ABDOMINAL DISTENSION [None]
  - INJECTION SITE PAIN [None]
  - INJECTION SITE REACTION [None]
